FAERS Safety Report 8044353-4 (Version None)
Quarter: 2011Q4

REPORT INFORMATION
  Report Type: 
  Country: None (occurrence: None)
  Receive Date: 20111202
  Receipt Date: 20101130
  Transmission Date: 20120403
  Serious: Yes (Hospitalization, Disabling, Other)
  Sender: FDA-Public Use
  Company Number: 2010SP062528

PATIENT
  Age: 36 Year
  Sex: Female
  Weight: 68.0396 kg

DRUGS (1)
  1. NUVARING [Suspect]
     Indication: CONTRACEPTION
     Dates: start: 20080601, end: 20081201

REACTIONS (9)
  - DEEP VEIN THROMBOSIS [None]
  - NAUSEA [None]
  - HEPATIC ENZYME INCREASED [None]
  - ANXIETY [None]
  - DIZZINESS [None]
  - ARTHROPATHY [None]
  - IRRITABLE BOWEL SYNDROME [None]
  - HEADACHE [None]
  - HYPOTENSION [None]
